FAERS Safety Report 9416819 (Version 1)
Quarter: 2013Q3

REPORT INFORMATION
  Report Type: Spontaneous
  Country: AU (occurrence: AU)
  Receive Date: 20130724
  Receipt Date: 20130724
  Transmission Date: 20140515
  Serious: Yes (Other)
  Sender: FDA-Public Use
  Company Number: AU-BAYER-2013-086023

PATIENT
  Age: 18 Year
  Sex: Female

DRUGS (1)
  1. CANESTEN CLOTRIMAZOLE THRUSH TREATMENT [Suspect]
     Indication: VULVOVAGINAL CANDIDIASIS
     Dosage: 1 UNITS, HS
     Route: 067
     Dates: start: 20130715

REACTIONS (2)
  - Foetal hypokinesia [None]
  - Exposure during pregnancy [None]
